FAERS Safety Report 10694245 (Version 1)
Quarter: 2015Q1

REPORT INFORMATION
  Report Type: Spontaneous
  Country: FR (occurrence: FR)
  Receive Date: 20150106
  Receipt Date: 20150106
  Transmission Date: 20150721
  Serious: Yes (Other)
  Sender: FDA-Public Use
  Company Number: FR-009507513-1501FRA000279

PATIENT

DRUGS (7)
  1. NEORAL [Interacting]
     Active Substance: CYCLOSPORINE
     Dosage: 150 MG, BID
  2. VICTRELIS [Suspect]
     Active Substance: BOCEPREVIR
     Indication: CHRONIC HEPATITIS C
     Dosage: 200 MG, TID
     Route: 048
  3. NEORAL [Interacting]
     Active Substance: CYCLOSPORINE
     Dosage: 80 MG MORNING AND EVENING
  4. RIBAVIRIN. [Suspect]
     Active Substance: RIBAVIRIN
     Indication: CHRONIC HEPATITIS C
     Dosage: 400 MG, QD
     Route: 048
  5. NEORAL [Interacting]
     Active Substance: CYCLOSPORINE
     Indication: IMMUNOSUPPRESSION
     Dosage: 100 MG MORNING AND EVENING
  6. RIBAVIRIN. [Suspect]
     Active Substance: RIBAVIRIN
     Dosage: 600 MG, QD
     Route: 048
  7. PEGINTRON [Suspect]
     Active Substance: PEGINTERFERON ALFA-2B
     Indication: CHRONIC HEPATITIS C
     Dosage: 180 MICROGRAM, QW

REACTIONS (2)
  - Virologic failure [Unknown]
  - Treatment noncompliance [Unknown]
